FAERS Safety Report 6468060-4 (Version None)
Quarter: 2009Q4

REPORT INFORMATION
  Report Type: 
  Country: None (occurrence: None)
  Receive Date: 20091202
  Receipt Date: 20091123
  Transmission Date: 20100525
  Serious: Yes (Hospitalization)
  Sender: FDA-Public Use
  Company Number: -VALEANT-2009VX002225

PATIENT
  Age: 53 Year
  Sex: Female

DRUGS (4)
  1. MESTINON [Suspect]
     Route: 048
  2. MYTELASE [Concomitant]
     Route: 065
  3. IMUREL [Concomitant]
     Route: 065
  4. MESTINON [Concomitant]
     Route: 065

REACTIONS (5)
  - ABDOMINAL PAIN [None]
  - BLOOD PRESSURE SYSTOLIC ABNORMAL [None]
  - DIARRHOEA [None]
  - SALIVARY HYPERSECRETION [None]
  - TREMOR [None]
